FAERS Safety Report 10487891 (Version 3)
Quarter: 2014Q4

REPORT INFORMATION
  Report Type: Report from Study
  Country: FR (occurrence: FR)
  Receive Date: 20141001
  Receipt Date: 20141022
  Transmission Date: 20150528
  Serious: Yes (Hospitalization)
  Sender: FDA-Public Use
  Company Number: FR-CELGENE-056-21880-14080591

PATIENT
  Age: 72 Year
  Sex: Male
  Weight: 96 kg

DRUGS (3)
  1. DEXAMETHASONE. [Suspect]
     Active Substance: DEXAMETHASONE
     Indication: PLASMA CELL MYELOMA
     Route: 048
     Dates: start: 20140408
  2. REVLIMID [Suspect]
     Active Substance: LENALIDOMIDE
     Indication: PLASMA CELL MYELOMA
     Dosage: 25 MILLIGRAM
     Route: 048
     Dates: start: 20140408
  3. MLN9708/PLACEBO [Suspect]
     Active Substance: IXAZOMIB
     Indication: PLASMA CELL MYELOMA
     Route: 048
     Dates: start: 20140408

REACTIONS (2)
  - Papillary thyroid cancer [Recovered/Resolved]
  - Goitre [Recovered/Resolved]

NARRATIVE: CASE EVENT DATE: 20140722
